FAERS Safety Report 18869803 (Version 2)
Quarter: 2021Q1

REPORT INFORMATION
  Report Type: Spontaneous
  Country: DE (occurrence: DE)
  Receive Date: 20210209
  Receipt Date: 20210326
  Transmission Date: 20210420
  Serious: Yes (Hospitalization, Other)
  Sender: FDA-Public Use
  Company Number: DE-ELI_LILLY_AND_COMPANY-DE202101013048

PATIENT
  Sex: Female
  Weight: 57 kg

DRUGS (8)
  1. PANTOPRAZOLE [Concomitant]
     Active Substance: PANTOPRAZOLE
     Indication: PRODUCT USED FOR UNKNOWN INDICATION
     Dosage: UNK, UNKNOWN
     Route: 065
  2. OLUMIANT [Suspect]
     Active Substance: BARICITINIB
     Dosage: 2 MG, DAILY
     Route: 048
     Dates: start: 20181210
  3. ESKAZOLE [Suspect]
     Active Substance: ALBENDAZOLE
     Dosage: 200 MG, BID ON BUSINESS DAYS
     Route: 065
     Dates: start: 20181210
  4. DULOXETINE. [Concomitant]
     Active Substance: DULOXETINE
     Indication: MYALGIA
     Dosage: 30 MG, DAILY
     Route: 065
  5. OLUMIANT [Suspect]
     Active Substance: BARICITINIB
     Indication: RHEUMATOID ARTHRITIS
     Dosage: 4 MG, UNKNOWN
     Route: 048
     Dates: start: 201704
  6. ESKAZOLE [Suspect]
     Active Substance: ALBENDAZOLE
     Dosage: 200 MG, DAILY ON WEEKEND
     Route: 065
     Dates: start: 20181210
  7. DULOXETINE. [Concomitant]
     Active Substance: DULOXETINE
     Indication: DEPRESSION
  8. ESKAZOLE [Suspect]
     Active Substance: ALBENDAZOLE
     Indication: HEPATIC ECHINOCOCCIASIS
     Dosage: UNK, UNKNOWN
     Route: 065
     Dates: start: 20180920

REACTIONS (13)
  - Hepatic echinococciasis [Not Recovered/Not Resolved]
  - Sleep disorder due to general medical condition, insomnia type [Unknown]
  - Headache [Unknown]
  - Nausea [Unknown]
  - Pneumonia [Unknown]
  - Hepatitis A antibody positive [Unknown]
  - Oral herpes [Unknown]
  - Weight increased [Not Recovered/Not Resolved]
  - Conjunctivitis [Unknown]
  - Vulvovaginal mycotic infection [Unknown]
  - Depression [Unknown]
  - Abdominal pain upper [Unknown]
  - Upper respiratory tract infection [Unknown]

NARRATIVE: CASE EVENT DATE: 20180904
